FAERS Safety Report 25515211 (Version 1)
Quarter: 2025Q3

REPORT INFORMATION
  Report Type: Spontaneous
  Country: JP (occurrence: JP)
  Receive Date: 20250703
  Receipt Date: 20250703
  Transmission Date: 20251020
  Serious: Yes (Death, Hospitalization, Other)
  Sender: SANDOZ
  Company Number: JP-SANDOZ INC.-SDZ2025JP046342

PATIENT
  Age: 64 Year
  Sex: Male

DRUGS (2)
  1. DOCETAXEL [Suspect]
     Active Substance: DOCETAXEL
     Indication: HER2 positive salivary gland cancer
     Route: 065
  2. TRASTUZUMAB [Suspect]
     Active Substance: TRASTUZUMAB
     Indication: HER2 positive salivary gland cancer
     Route: 065

REACTIONS (11)
  - Respiratory failure [Fatal]
  - Hypoalbuminaemia [Fatal]
  - Concomitant disease aggravated [Fatal]
  - Pleural effusion [Fatal]
  - Hypoglycaemia [Unknown]
  - Fatigue [Unknown]
  - Anaemia [Unknown]
  - Decreased appetite [Unknown]
  - Renal impairment [Unknown]
  - Oedema peripheral [Unknown]
  - Nausea [Unknown]
